FAERS Safety Report 4396696-3 (Version None)
Quarter: 2004Q3

REPORT INFORMATION
  Report Type: 
  Country: None (occurrence: None)
  Receive Date: 20040709
  Receipt Date: 20040628
  Transmission Date: 20050211
  Serious: Yes (Death)
  Sender: FDA-Public Use
  Company Number: 2004EU001091

PATIENT
  Age: 55 Year
  Sex: Female

DRUGS (1)
  1. FK506 (TACROLIMUS CAPSULES) [Suspect]
     Indication: LIVER TRANSPLANT
     Dates: start: 20030901

REACTIONS (4)
  - BILIARY TRACT DISORDER [None]
  - HEPATIC ARTERY THROMBOSIS [None]
  - PERITONITIS [None]
  - SEPTIC SHOCK [None]
